FAERS Safety Report 9599991 (Version 1)
Quarter: 2013Q4

REPORT INFORMATION
  Report Type: Spontaneous
  Country: US (occurrence: US)
  Receive Date: 20131004
  Receipt Date: 20131004
  Transmission Date: 20140711
  Serious: No
  Sender: FDA-Public Use
  Company Number: US-AMGEN-USASP2013031956

PATIENT
  Age: 56 Year
  Sex: Male
  Weight: 104.31 kg

DRUGS (3)
  1. ENBREL [Suspect]
     Indication: PRODUCT USED FOR UNKNOWN INDICATION
     Dosage: 50 MG, TWICE WEEKLY
  2. LISINOPRIL AND HYDROCHLORTIAZIDE [Concomitant]
     Dosage: 10 - 12.5, UNK, UNK
  3. GLIMEPIRIDE [Concomitant]
     Dosage: 1 MG, UNK

REACTIONS (1)
  - Tendonitis [Unknown]
